FAERS Safety Report 7207766-6 (Version None)
Quarter: 2011Q1

REPORT INFORMATION
  Report Type: 
  Country: None (occurrence: None)
  Receive Date: 20110103
  Receipt Date: 20101221
  Transmission Date: 20110831
  Serious: Yes (Hospitalization)
  Sender: FDA-Public Use
  Company Number: DE-MYLANLABS-2009S1003541

PATIENT
  Age: 74 Year
  Sex: Female

DRUGS (9)
  1. BISOPROLOL [Suspect]
     Indication: HYPERTENSION
  2. XIPAMIDE [Interacting]
     Indication: HYPERTENSION
     Route: 048
     Dates: start: 20080401, end: 20080911
  3. PREDNISOLONE [Concomitant]
     Indication: RHEUMATOID ARTHRITIS
     Route: 048
     Dates: start: 20030101
  4. SIMVAHEXAL [Concomitant]
     Indication: PROPHYLAXIS
     Route: 048
     Dates: start: 20030101
  5. TORSEMIDE [Interacting]
     Indication: HYPERTENSION
     Route: 048
     Dates: start: 20080825, end: 20080920
  6. ENALAPRIL [Interacting]
     Indication: RENAL FAILURE
     Route: 048
     Dates: start: 20080401
  7. METHOTREXAT /00113801/ [Concomitant]
     Indication: RHEUMATOID ARTHRITIS
     Route: 048
     Dates: start: 20080825
  8. OMEPRAZOLE [Concomitant]
     Indication: GASTRITIS
     Route: 048
     Dates: start: 20030101
  9. FALITHROM [Concomitant]
     Indication: TACHYARRHYTHMIA
     Route: 048

REACTIONS (2)
  - DRUG INTERACTION [None]
  - DEHYDRATION [None]
